FAERS Safety Report 17942297 (Version 1)
Quarter: 2020Q2

REPORT INFORMATION
  Report Type: Spontaneous
  Country: SE (occurrence: SE)
  Receive Date: 20200624
  Receipt Date: 20200624
  Transmission Date: 20200714
  Serious: Yes (Hospitalization, Other)
  Sender: FDA-Public Use
  Company Number: NVSC2020SE175486

PATIENT
  Sex: Female
  Weight: 59 kg

DRUGS (17)
  1. RITUXIMAB. [Suspect]
     Active Substance: RITUXIMAB
     Indication: PRODUCT USED FOR UNKNOWN INDICATION
     Dosage: 600 MILLIGRAM
     Route: 042
     Dates: start: 20191024
  2. IFOSFAMIDE. [Suspect]
     Active Substance: IFOSFAMIDE
     Indication: PRODUCT USED FOR UNKNOWN INDICATION
     Dosage: 7850 MILLIGRAM
     Route: 065
     Dates: start: 20191025
  3. ETOPOSIDE. [Suspect]
     Active Substance: ETOPOSIDE
     Indication: PRODUCT USED FOR UNKNOWN INDICATION
     Dosage: 157 MG, QD
     Route: 042
     Dates: start: 20191024
  4. VALTREX [Concomitant]
     Active Substance: VALACYCLOVIR HYDROCHLORIDE
     Indication: PROPHYLAXIS
     Dosage: 250 MILLIGRAM, BID
     Route: 048
     Dates: start: 20190331
  5. RITUXIMAB. [Suspect]
     Active Substance: RITUXIMAB
     Dosage: 600 MILLIGRAM X 1
     Route: 042
     Dates: start: 20191223
  6. GEMCITABINE. [Suspect]
     Active Substance: GEMCITABINE
     Indication: PRODUCT USED FOR UNKNOWN INDICATION
     Dosage: 1177.5 MILLIGRAM X 1
     Route: 042
     Dates: start: 20191223, end: 20191230
  7. CIPROFLOXACIN. [Concomitant]
     Active Substance: CIPROFLOXACIN
     Indication: PRODUCT USED FOR UNKNOWN INDICATION
     Dosage: 500 MILLIGRAM, BID
     Route: 065
     Dates: start: 20191022, end: 20191029
  8. NIVESTIM [Concomitant]
     Active Substance: FILGRASTIM
     Indication: PRODUCT USED FOR UNKNOWN INDICATION
     Dosage: UNK
     Route: 065
  9. NIVESTIM [Concomitant]
     Active Substance: FILGRASTIM
     Dosage: UNK, 30 ME/0.5 ML
     Route: 065
     Dates: start: 20191030
  10. ALLOPURINOL. [Concomitant]
     Active Substance: ALLOPURINOL
     Indication: PRODUCT USED FOR UNKNOWN INDICATION
     Dosage: UNK
     Route: 065
     Dates: start: 20191024, end: 20191030
  11. RITUXIMAB. [Suspect]
     Active Substance: RITUXIMAB
     Dosage: 600 MILLIGRAM X 1
     Route: 042
     Dates: start: 20191125, end: 20191125
  12. CARBOPLATIN. [Suspect]
     Active Substance: CARBOPLATIN
     Indication: PRODUCT USED FOR UNKNOWN INDICATION
     Dosage: 475 MILLIGRAM
     Route: 042
     Dates: start: 20191025, end: 20191025
  13. CARBOPLATIN. [Suspect]
     Active Substance: CARBOPLATIN
     Dosage: 348.75 MILLIGRAM X 1
     Route: 042
     Dates: start: 20191126
  14. IFOSFAMIDE. [Suspect]
     Active Substance: IFOSFAMIDE
     Dosage: 5887.5 MILLIGRAM X 1
     Route: 042
     Dates: start: 20191126
  15. ETOPOSIDE. [Suspect]
     Active Substance: ETOPOSIDE
     Dosage: 118 MG, QD (118 MILLIGRAM X 1)
     Route: 042
     Dates: start: 20191125
  16. CISPLATIN. [Suspect]
     Active Substance: CISPLATIN
     Indication: PRODUCT USED FOR UNKNOWN INDICATION
     Dosage: 88.31 MILLIGRAM
     Route: 042
     Dates: start: 20191223, end: 20191223
  17. BACTRIM [Concomitant]
     Active Substance: SULFAMETHOXAZOLE\TRIMETHOPRIM
     Indication: PROPHYLAXIS
     Dosage: 1 DOSAGE FORM, 400/80 MILLIGRAM
     Route: 048
     Dates: start: 20190411

REACTIONS (3)
  - Febrile neutropenia [Not Recovered/Not Resolved]
  - Sepsis [Recovered/Resolved]
  - Pyrexia [Recovered/Resolved]

NARRATIVE: CASE EVENT DATE: 20191105
